FAERS Safety Report 5621348-9 (Version None)
Quarter: 2008Q1

REPORT INFORMATION
  Report Type: 
  Country: None (occurrence: None)
  Receive Date: 20080129
  Receipt Date: 20080129
  Transmission Date: 20080703
  Serious: Yes (Other)
  Sender: FDA-Public Use
  Company Number: None

PATIENT
  Sex: Male
  Weight: 82.5547 kg

DRUGS (1)
  1. LYRICA [Suspect]
     Indication: NEURALGIA
     Dosage: 100 MG  TID  PO
     Route: 048
     Dates: start: 20080124, end: 20080125

REACTIONS (5)
  - CONFUSIONAL STATE [None]
  - DROOLING [None]
  - DYSPHEMIA [None]
  - LETHARGY [None]
  - SENSATION OF HEAVINESS [None]
